FAERS Safety Report 5327029-3 (Version None)
Quarter: 2007Q2

REPORT INFORMATION
  Report Type: 
  Country: None (occurrence: None)
  Receive Date: 20070517
  Receipt Date: 20070514
  Transmission Date: 20071010
  Serious: Yes (Life-Threatening)
  Sender: FDA-Public Use
  Company Number: PHFR2007GB01576

PATIENT
  Age: 51 Year
  Sex: Male

DRUGS (14)
  1. HEPARIN CALCIUM [Concomitant]
     Dosage: 5000 IU, BID
     Route: 065
     Dates: start: 20070407
  2. LINEZOLID [Concomitant]
     Dosage: 600 MG
     Route: 065
     Dates: start: 20070413
  3. MORPHINE [Concomitant]
     Dosage: 2 MG, QH
     Route: 065
     Dates: start: 20070309, end: 20070413
  4. MOVICOL [Concomitant]
     Dosage: BID
     Route: 065
     Dates: start: 20070406, end: 20070415
  5. NYSTATIN [Concomitant]
     Dosage: 1000000 IU, QID
     Route: 061
     Dates: start: 20070405, end: 20070418
  6. OMEPRAZOLE [Concomitant]
     Dosage: 20 MG, QD
     Route: 065
     Dates: start: 20070409, end: 20070410
  7. PARACETAMOL [Concomitant]
     Dosage: 1 G
     Route: 065
     Dates: start: 20070319
  8. PROPOFOL [Concomitant]
     Dosage: 3 G, QH
     Route: 065
     Dates: start: 20070410, end: 20070413
  9. RIFAMPICIN [Concomitant]
     Dosage: 300 MG, BID
     Route: 065
     Dates: start: 20070404, end: 20070410
  10. SALBUTAMOL [Concomitant]
     Dosage: 5 MG, QID
     Route: 065
     Dates: start: 20070408
  11. SENNA [Concomitant]
     Dosage: 10 ML, QD
     Route: 065
     Dates: start: 20070331, end: 20070416
  12. DOCUSATE SODIUM [Concomitant]
     Dosage: 100 MG, TID
     Route: 065
     Dates: start: 20070401, end: 20070415
  13. VANCOMYCIN [Concomitant]
     Dosage: 3 G, Q2H
     Route: 065
     Dates: start: 20070331, end: 20070410
  14. DICLOFENAC [Suspect]
     Indication: PAIN
     Dosage: 50 MG, TID
     Route: 048
     Dates: start: 20070405, end: 20070410

REACTIONS (1)
  - BLOOD POTASSIUM INCREASED [None]
